FAERS Safety Report 9916657 (Version 2)
Quarter: 2014Q2

REPORT INFORMATION
  Report Type: Spontaneous
  Country: US (occurrence: US)
  Receive Date: 20140221
  Receipt Date: 20140402
  Transmission Date: 20141212
  Serious: No
  Sender: FDA-Public Use
  Company Number: US-PFIZER INC-2014048796

PATIENT
  Age: 75 Year
  Sex: Female
  Weight: 78.46 kg

DRUGS (2)
  1. ESTRADIOL [Suspect]
     Indication: BONE DISORDER
     Dosage: 1 MG, DAILY
     Dates: start: 201302, end: 201307
  2. SYNTHROID [Concomitant]
     Indication: THYROID DISORDER
     Dosage: 1.75 UG, 1X/DAY

REACTIONS (1)
  - Malaise [Unknown]
